FAERS Safety Report 6075631-6 (Version None)
Quarter: 2009Q1

REPORT INFORMATION
  Report Type: 
  Country: None (occurrence: None)
  Receive Date: 20090212
  Receipt Date: 20090203
  Transmission Date: 20090719
  Serious: Yes (Other)
  Sender: FDA-Public Use
  Company Number: US-PFIZER INC-2006126698

PATIENT
  Age: 51 Year
  Sex: Female

DRUGS (1)
  1. XALATAN [Suspect]

REACTIONS (3)
  - EYE DISORDER [None]
  - FUNGAL INFECTION [None]
  - ULCERATIVE KERATITIS [None]
